FAERS Safety Report 12865845 (Version 8)
Quarter: 2018Q1

REPORT INFORMATION
  Report Type: Spontaneous
  Country: US (occurrence: US)
  Receive Date: 20161020
  Receipt Date: 20180129
  Transmission Date: 20180508
  Serious: Yes (Death, Life-Threatening, Hospitalization, Other)
  Sender: FDA-Public Use
  Company Number: PHEH2016US027012

PATIENT
  Age: 61 Year
  Sex: Female

DRUGS (3)
  1. AMPYRA [Suspect]
     Active Substance: DALFAMPRIDINE
     Indication: PRODUCT USED FOR UNKNOWN INDICATION
     Dosage: UNK
     Route: 065
  2. GILENYA [Suspect]
     Active Substance: FINGOLIMOD HYDROCHLORIDE
     Indication: RELAPSING-REMITTING MULTIPLE SCLEROSIS
     Dosage: UNK
     Route: 048
     Dates: start: 201112
  3. GILENYA [Suspect]
     Active Substance: FINGOLIMOD HYDROCHLORIDE
     Dosage: 0.5 MG, QD
     Route: 048
     Dates: start: 20120102

REACTIONS (16)
  - Confusional state [Fatal]
  - Brain oedema [Fatal]
  - Encephalopathy [Fatal]
  - Cerebral infarction [Fatal]
  - Central nervous system lesion [Fatal]
  - Intracranial pressure increased [Fatal]
  - Nystagmus [Fatal]
  - Ataxia [Fatal]
  - Meningitis cryptococcal [Recovered/Resolved]
  - Headache [Fatal]
  - Seizure [Fatal]
  - Meningitis cryptococcal [Fatal]
  - Gait disturbance [Fatal]
  - Movement disorder [Fatal]
  - Coma [Unknown]
  - Mental status changes [Fatal]

NARRATIVE: CASE EVENT DATE: 2016
